FAERS Safety Report 26092101 (Version 1)
Quarter: 2025Q4

REPORT INFORMATION
  Report Type: Spontaneous
  Country: US (occurrence: US)
  Receive Date: 20251126
  Receipt Date: 20251126
  Transmission Date: 20260118
  Serious: No
  Sender: PFIZER
  Company Number: US-PFIZER INC-202500225831

PATIENT
  Age: 18 Year
  Sex: Male

DRUGS (1)
  1. LITFULO [Suspect]
     Active Substance: RITLECITINIB TOSYLATE
     Indication: Alopecia areata
     Dosage: 50 MG, DAILY

REACTIONS (7)
  - Alopecia areata [Unknown]
  - Condition aggravated [Unknown]
  - Rash [Unknown]
  - Acne [Unknown]
  - Papule [Unknown]
  - Pustule [Unknown]
  - Product dose omission issue [Unknown]
